FAERS Safety Report 21865381 (Version 1)
Quarter: 2023Q1

REPORT INFORMATION
  Report Type: Other
  Country: US (occurrence: None)
  Receive Date: 20230116
  Receipt Date: 20230116
  Transmission Date: 20230418
  Serious: No
  Sender: FDA-Public Use
  Company Number: US-ROCHE-3264770

PATIENT
  Age: 46 Year
  Sex: Female

DRUGS (1)
  1. OCREVUS [Suspect]
     Active Substance: OCRELIZUMAB
     Indication: Multiple sclerosis
     Dosage: 300MG ON DAY 1 AND 14 , THEN 600MG ONCE IN 6 MONTHS.?DOT: 2023-01-05, 2022-06-16, 2021-12-02,2021-05
     Route: 042

REACTIONS (1)
  - COVID-19 [Unknown]
